FAERS Safety Report 18467718 (Version 1)
Quarter: 2020Q4

REPORT INFORMATION
  Report Type: Spontaneous
  Country: US (occurrence: US)
  Receive Date: 20201104
  Receipt Date: 20201104
  Transmission Date: 20210114
  Serious: No
  Sender: FDA-Public Use
  Company Number: None

PATIENT
  Age: 72 Year
  Sex: Male
  Weight: 113 kg

DRUGS (1)
  1. CEFTRIAXONE (CEFTRIAXONE NA 1GM/VIL INJ) [Suspect]
     Active Substance: CEFTRIAXONE SODIUM

REACTIONS (1)
  - Anaphylactic reaction [None]

NARRATIVE: CASE EVENT DATE: 20200420
